FAERS Safety Report 6456856-4 (Version None)
Quarter: 2009Q4

REPORT INFORMATION
  Report Type: 
  Country: None (occurrence: None)
  Receive Date: 20091125
  Receipt Date: 20091117
  Transmission Date: 20100525
  Serious: Yes (Other)
  Sender: FDA-Public Use
  Company Number: US-PFIZER INC-2009300208

PATIENT
  Sex: Female
  Weight: 52.608 kg

DRUGS (1)
  1. GABAPENTIN [Suspect]
     Indication: BACK PAIN
     Dosage: 200 MG, 3X/DAY
     Dates: start: 20091001

REACTIONS (5)
  - BLADDER IRRITATION [None]
  - DISCOMFORT [None]
  - FEELING ABNORMAL [None]
  - INTENTIONAL DRUG MISUSE [None]
  - PAIN [None]
